FAERS Safety Report 17947927 (Version 1)
Quarter: 2020Q2

REPORT INFORMATION
  Report Type: Spontaneous
  Country: CA (occurrence: CA)
  Receive Date: 20200625
  Receipt Date: 20200625
  Transmission Date: 20200714
  Serious: Yes (Life-Threatening, Hospitalization, Other)
  Sender: FDA-Public Use
  Company Number: CA-PURDUE-GBR-2020-0077340

PATIENT
  Age: 20 Month
  Sex: Male
  Weight: 15 kg

DRUGS (2)
  1. NON-PMN MORPHINE SULFATE [Suspect]
     Active Substance: MORPHINE SULFATE
     Dosage: 2 MG, UNK
     Route: 048
  2. NON-PMN MORPHINE SULFATE [Suspect]
     Active Substance: MORPHINE SULFATE
     Indication: PRODUCT USED FOR UNKNOWN INDICATION
     Dosage: AFTER 2 HOURS
     Route: 048

REACTIONS (2)
  - Neurotoxicity [Recovering/Resolving]
  - Accidental overdose [Recovering/Resolving]
